FAERS Safety Report 10881736 (Version 2)
Quarter: 2015Q2

REPORT INFORMATION
  Report Type: Spontaneous
  Country: IT (occurrence: None)
  Receive Date: 20150226
  Receipt Date: 20150511
  Transmission Date: 20150821
  Serious: Yes (Hospitalization, Other)
  Sender: FDA-Public Use
  Company Number: 20130696M

PATIENT
  Age: 68 Year
  Sex: Female

DRUGS (3)
  1. REUMAFLEX 50 MG/ML (METHOTREXATE) [Suspect]
     Active Substance: METHOTREXATE
     Indication: RHEUMATOID ARTHRITIS
     Route: 058
     Dates: start: 20120412, end: 20121206
  2. ROACTEMRA [Suspect]
     Active Substance: TOCILIZUMAB
     Indication: RHEUMATOID ARTHRITIS
     Dosage: 38 WEEK, INTRAVENOUS (NOT OTHERWISE SPECIFIED)?
     Route: 042
     Dates: start: 20120315, end: 20121206
  3. PREDNISONE. [Concomitant]
     Active Substance: PREDNISONE

REACTIONS (12)
  - Lymphadenopathy [None]
  - Hepatic infection [None]
  - Opportunistic infection [None]
  - Gamma-glutamyltransferase increased [None]
  - Osteolysis [None]
  - Alanine aminotransferase increased [None]
  - Hepatic lesion [None]
  - Gallbladder disorder [None]
  - Hepatic neoplasm [None]
  - Aspartate aminotransferase increased [None]
  - Splenomegaly [None]
  - Ascites [None]

NARRATIVE: CASE EVENT DATE: 20130104
